FAERS Safety Report 6810790-6 (Version None)
Quarter: 2010Q2

REPORT INFORMATION
  Report Type: 
  Country: None (occurrence: None)
  Receive Date: 20100630
  Receipt Date: 20080604
  Transmission Date: 20101027
  Serious: No
  Sender: FDA-Public Use
  Company Number: US-PFIZER INC-2008044312

PATIENT
  Sex: Female
  Weight: 68.181 kg

DRUGS (2)
  1. ESTRING [Suspect]
     Indication: VULVOVAGINAL DRYNESS
     Route: 067
     Dates: end: 20080512
  2. SYNTHROID [Concomitant]
     Indication: AUTOIMMUNE THYROIDITIS

REACTIONS (4)
  - ABDOMINAL DISTENSION [None]
  - APPLICATION SITE HAEMATOMA [None]
  - DEPRESSION [None]
  - FEELING ABNORMAL [None]
